FAERS Safety Report 21585792 (Version 1)
Quarter: 2022Q4

REPORT INFORMATION
  Report Type: Spontaneous
  Country: CA (occurrence: CA)
  Receive Date: 20221111
  Receipt Date: 20221111
  Transmission Date: 20230112
  Serious: Yes (Hospitalization)
  Sender: FDA-Public Use
  Company Number: CA-PFIZER INC-202201289990

PATIENT
  Age: 8 Year
  Sex: Male
  Weight: 37 kg

DRUGS (6)
  1. SUCCINYLCHOLINE CHLORIDE [Suspect]
     Active Substance: SUCCINYLCHOLINE CHLORIDE
     Indication: Laryngospasm
     Dosage: ONCE
     Route: 042
  2. ATROPINE [Concomitant]
     Active Substance: ATROPINE
  3. DEXAMETHASONE [Concomitant]
     Active Substance: DEXAMETHASONE
  4. FENTANYL [Concomitant]
     Active Substance: FENTANYL
  5. IBUPROFEN [Concomitant]
     Active Substance: IBUPROFEN
  6. PROPOFOL [Concomitant]
     Active Substance: PROPOFOL
     Route: 065

REACTIONS (3)
  - Gait disturbance [Unknown]
  - Muscle contractions involuntary [Unknown]
  - Myalgia [Unknown]
